FAERS Safety Report 7339712-9 (Version None)
Quarter: 2011Q1

REPORT INFORMATION
  Report Type: 
  Country: None (occurrence: None)
  Receive Date: 20110309
  Receipt Date: 20110303
  Transmission Date: 20110831
  Serious: Yes (Hospitalization)
  Sender: FDA-Public Use
  Company Number: US-ELI_LILLY_AND_COMPANY-US201103001162

PATIENT
  Sex: Female
  Weight: 79.819 kg

DRUGS (10)
  1. METFORMIN [Concomitant]
     Dosage: 500 MG, 2/D
     Route: 048
     Dates: start: 20101101, end: 20110201
  2. LACTINEX [Concomitant]
  3. AMBIEN [Concomitant]
     Dosage: 10 MG, EACH EVENING
     Route: 048
  4. BYETTA [Suspect]
     Indication: TYPE 2 DIABETES MELLITUS
     Dosage: 5 UG, DAILY (1/D)
     Route: 058
     Dates: end: 20101101
  5. PROTONIX [Concomitant]
     Dosage: 40 MG, 2/D
     Route: 048
  6. METFORMIN [Concomitant]
     Indication: TYPE 2 DIABETES MELLITUS
     Dosage: 500 MG/KG, DAILY (1/D)
     Route: 048
     Dates: end: 20101101
  7. PRINIVIL [Concomitant]
     Indication: MYOCARDIAL INFARCTION
     Dosage: 20 MG, DAILY (1/D)
     Route: 048
  8. BYETTA [Suspect]
     Dosage: 5 UG, 2/D
     Route: 058
     Dates: start: 20101101, end: 20110209
  9. CYMBALTA [Concomitant]
     Dosage: 30 MG, DAILY (1/D)
     Route: 048
  10. LASIX [Concomitant]
     Dosage: 40 MG, DAILY (1/D)
     Route: 048

REACTIONS (11)
  - RENAL CYST [None]
  - CONSTIPATION [None]
  - WEIGHT DECREASED [None]
  - DIARRHOEA [None]
  - MOBILITY DECREASED [None]
  - BLOOD GLUCOSE INCREASED [None]
  - ABDOMINAL DISCOMFORT [None]
  - ASTHENIA [None]
  - RASH [None]
  - RECTAL HAEMORRHAGE [None]
  - VOMITING [None]
